FAERS Safety Report 9354168 (Version 1)
Quarter: 2013Q2

REPORT INFORMATION
  Report Type: Spontaneous
  Country: GB (occurrence: None)
  Receive Date: 20130613
  Receipt Date: 20130613
  Transmission Date: 20140414
  Serious: Yes (Other)
  Sender: FDA-Public Use
  Company Number: AUR-APL-2013-04810

PATIENT
  Age: 2 Decade
  Sex: Female

DRUGS (8)
  1. NAPROXEN [Suspect]
     Indication: TOOTH IMPACTED
     Dosage: 1000 MG???
     Route: 048
     Dates: start: 20130514, end: 20130518
  2. MEFENAMIC ACID [Suspect]
     Indication: IRRITABLE BOWEL SYNDROME
     Dosage: 1500 MG?
     Route: 048
     Dates: start: 20130514, end: 20130518
  3. BACLOFEN(BACLOFEN) [Concomitant]
  4. CO-CODAMOL(PANADEINE CO) [Concomitant]
  5. CO-CYPRINDIOL(DIANE) [Concomitant]
  6. DOMPERIDONE(DOMPERIDONE) [Concomitant]
  7. LACTULOSE(LACTULOSE) [Concomitant]
  8. ZOPICLONE(ZOPICLONE) [Concomitant]

REACTIONS (4)
  - Abdominal pain [None]
  - Haematochezia [None]
  - Anal fissure [None]
  - Faecal incontinence [None]
